FAERS Safety Report 10012212 (Version 2)
Quarter: 2014Q2

REPORT INFORMATION
  Report Type: Report from Study
  Country: US (occurrence: US)
  Receive Date: 20140314
  Receipt Date: 20140411
  Transmission Date: 20141212
  Serious: Yes (Death, Congenital Anomaly)
  Sender: FDA-Public Use
  Company Number: US-ABBVIE-14P-163-1211539-00

PATIENT
  Sex: Female

DRUGS (3)
  1. KALETRA [Suspect]
     Indication: MATERNAL EXPOSURE TIMING UNSPECIFIED
     Route: 064
  2. LAMIVUDINE [Suspect]
     Indication: MATERNAL EXPOSURE TIMING UNSPECIFIED
     Route: 064
  3. ABACAVIR [Suspect]
     Indication: MATERNAL EXPOSURE TIMING UNSPECIFIED
     Route: 064

REACTIONS (11)
  - Premature baby [Fatal]
  - Acute hepatic failure [Fatal]
  - Renal failure acute [Fatal]
  - Respiratory arrest [Fatal]
  - Cardiomegaly [Unknown]
  - Foetal growth restriction [Unknown]
  - Abdominal distension [Unknown]
  - Pseudocyst [Unknown]
  - Gastrointestinal disorder congenital [Recovering/Resolving]
  - Neural tube defect [Unknown]
  - Foetal exposure during pregnancy [Unknown]
